FAERS Safety Report 6406197-6 (Version None)
Quarter: 2009Q4

REPORT INFORMATION
  Report Type: 
  Country: None (occurrence: None)
  Receive Date: 20091014
  Receipt Date: 20090928
  Transmission Date: 20100525
  Serious: Yes (Other)
  Sender: FDA-Public Use
  Company Number: 2009-3971

PATIENT
  Age: 50 Year
  Sex: Female
  Weight: 56.7 kg

DRUGS (2)
  1. DYSPORT [Suspect]
     Dosage: (50 UNITS,SINGLE CYCLE)
     Dates: start: 20090916, end: 20090916
  2. MINOCYCLINE HCL [Concomitant]

REACTIONS (9)
  - ANXIETY [None]
  - DRY MOUTH [None]
  - DYSPHAGIA [None]
  - DYSPNOEA [None]
  - HEADACHE [None]
  - HYPERSENSITIVITY [None]
  - HYPERTENSION [None]
  - NECK PAIN [None]
  - PARAESTHESIA [None]
